FAERS Safety Report 6140310-3 (Version None)
Quarter: 2009Q2

REPORT INFORMATION
  Report Type: 
  Country: None (occurrence: None)
  Receive Date: 20090401
  Receipt Date: 20090330
  Transmission Date: 20091009
  Serious: Yes (Death, Other)
  Sender: FDA-Public Use
  Company Number: PHEH2009US03215

PATIENT
  Sex: Male

DRUGS (7)
  1. NEORAL [Suspect]
     Dosage: UNK, UNK
  2. FLUOXYMESTERONE [Suspect]
  3. TESTOSTERONE PROPIONATE [Suspect]
  4. STANOZOLOL [Suspect]
  5. NANDROLONE DECANOATE [Suspect]
  6. SOMATROPIN [Suspect]
  7. THYROID TAB [Suspect]

REACTIONS (2)
  - CARDIAC FAILURE [None]
  - HEART TRANSPLANT [None]
